FAERS Safety Report 4370285-9 (Version None)
Quarter: 2004Q2

REPORT INFORMATION
  Report Type: 
  Country: None (occurrence: None)
  Receive Date: 20040603
  Receipt Date: 20040405
  Transmission Date: 20050107
  Serious: No
  Sender: FDA-Public Use
  Company Number: US-BRISTOL-MYERS SQUIBB COMPANY-12551651

PATIENT
  Age: 33 Year
  Sex: Female

DRUGS (5)
  1. ABILIFY [Suspect]
     Indication: PSYCHOTIC DISORDER
     Dosage: 7.5 MG/DAY ON 25-NOV-03 FOR TWO WEEKS, THEN 15 MG/DAY
     Route: 048
     Dates: start: 20031125
  2. LEXAPRO [Concomitant]
  3. DEPAKOTE [Concomitant]
  4. FLONASE [Concomitant]
  5. CONTRACEPTIVE [Concomitant]

REACTIONS (6)
  - COGWHEEL RIGIDITY [None]
  - DROOLING [None]
  - DYSARTHRIA [None]
  - DYSKINESIA [None]
  - GAIT DISTURBANCE [None]
  - MASKED FACIES [None]
